FAERS Safety Report 7004180-3 (Version None)
Quarter: 2010Q3

REPORT INFORMATION
  Report Type: 
  Country: None (occurrence: None)
  Receive Date: 20100920
  Receipt Date: 20100212
  Transmission Date: 20110219
  Serious: No
  Sender: FDA-Public Use
  Company Number: US-WYE-H13637610

PATIENT
  Sex: Male
  Weight: 88.53 kg

DRUGS (2)
  1. PRISTIQ [Suspect]
     Indication: DEPRESSION
     Route: 048
     Dates: start: 20100107
  2. SOMINEX [Concomitant]

REACTIONS (3)
  - BLOOD PRESSURE INCREASED [None]
  - MIDDLE INSOMNIA [None]
  - NIGHT SWEATS [None]
